FAERS Safety Report 5650829-7 (Version None)
Quarter: 2008Q1

REPORT INFORMATION
  Report Type: 
  Country: None (occurrence: None)
  Receive Date: 20080305
  Receipt Date: 20080223
  Transmission Date: 20080703
  Serious: Yes (Other)
  Sender: FDA-Public Use
  Company Number: US-JNJFOC-20080206491

PATIENT
  Sex: Male
  Weight: 70.31 kg

DRUGS (21)
  1. DURAGESIC-100 [Suspect]
     Dosage: AS NEEDED
     Route: 062
  2. DURAGESIC-100 [Suspect]
     Indication: BONE PAIN
     Route: 062
  3. BACLOFEN [Concomitant]
     Indication: MUSCLE SPASMS
     Route: 048
  4. BONIVA [Concomitant]
     Indication: OSTEOPOROSIS
     Route: 048
  5. IBUPROFEN [Concomitant]
     Route: 048
  6. TYLENOL W/ CODEINE NO. 3 [Concomitant]
     Indication: BREAKTHROUGH PAIN
     Route: 048
  7. MORPHINE [Concomitant]
     Indication: BREAKTHROUGH PAIN
     Dosage: 5-20 MG
     Route: 048
  8. ATIVAN [Concomitant]
     Indication: CONVULSION
     Route: 048
  9. DIASTAT [Concomitant]
     Indication: CONVULSION
     Route: 054
  10. TRILEPTAL [Concomitant]
     Dosage: 3 X 300 MG TABLETS AT BEDTIME
     Route: 048
  11. TRILEPTAL [Concomitant]
     Indication: CONVULSION
     Dosage: 2 X 300 MG TABLETS IN THE MORNING
     Route: 048
  12. LAMICTAL [Concomitant]
     Route: 048
  13. LAMICTAL [Concomitant]
     Indication: CONVULSION
     Route: 048
  14. KLONOPIN [Concomitant]
     Indication: MUSCLE SPASMS
     Route: 048
  15. KLONOPIN [Concomitant]
     Indication: EPILEPSY
     Route: 048
  16. ZONEGRAN [Concomitant]
     Indication: EPILEPSY
     Route: 048
  17. LEXAPRO [Concomitant]
     Route: 048
  18. LEXAPRO [Concomitant]
     Indication: DEPRESSION
     Route: 048
  19. PROVIGIL [Concomitant]
     Indication: SOMNOLENCE
     Route: 048
  20. NEXIUM [Concomitant]
     Indication: GASTROOESOPHAGEAL REFLUX DISEASE
     Route: 048
  21. MELATONIN [Concomitant]
     Indication: SLEEP DISORDER
     Route: 048

REACTIONS (5)
  - DEVICE LEAKAGE [None]
  - HYPOGONADISM [None]
  - HYPOTHYROIDISM [None]
  - INAPPROPRIATE SCHEDULE OF DRUG ADMINISTRATION [None]
  - PAIN [None]
